FAERS Safety Report 21105513 (Version 3)
Quarter: 2024Q2

REPORT INFORMATION
  Report Type: Spontaneous
  Country: ES (occurrence: ES)
  Receive Date: 20220720
  Receipt Date: 20240417
  Transmission Date: 20240716
  Serious: Yes (Hospitalization, Other)
  Sender: FDA-Public Use
  Company Number: ES-MLMSERVICE-20220708-3662692-1

PATIENT
  Age: 75 Year
  Sex: Female

DRUGS (3)
  1. TAXOTERE [Suspect]
     Active Substance: DOCETAXEL
     Indication: Breast cancer
     Dosage: 75 MG/ML, Q3W
  2. CARBOPLATIN [Suspect]
     Active Substance: CARBOPLATIN
     Indication: Breast cancer
     Dosage: UNK, Q3W
  3. HERCEPTIN [Suspect]
     Active Substance: TRASTUZUMAB
     Indication: Breast cancer
     Dosage: 6 MG/KG, QCY (6 MG/KG/12 MONTHS)

REACTIONS (15)
  - Blepharitis [Unknown]
  - Dry eye [Unknown]
  - Meibomianitis [Unknown]
  - Entropion [Unknown]
  - Distichiasis [Unknown]
  - Trichiasis [Unknown]
  - Eyelash changes [Unknown]
  - Vulvovaginal inflammation [Recovering/Resolving]
  - Anal inflammation [Recovering/Resolving]
  - Noninfective conjunctivitis [Recovering/Resolving]
  - Toxicity to various agents [Recovering/Resolving]
  - Hyperaemia [Unknown]
  - Swelling [Unknown]
  - Scab [Unknown]
  - Eyelash changes [Unknown]
